FAERS Safety Report 4775689-8 (Version None)
Quarter: 2005Q3

REPORT INFORMATION
  Report Type: 
  Country: None (occurrence: None)
  Receive Date: 20050921
  Receipt Date: 20050908
  Transmission Date: 20060218
  Serious: Yes (Other)
  Sender: FDA-Public Use
  Company Number: 2005126048

PATIENT
  Age: 13 Year
  Sex: Male
  Weight: 63.5036 kg

DRUGS (2)
  1. NATURAL CITRUS LISTERINE (MENTHOL, METHYL SALICYLATE, EUCALYPTOL, THYM [Suspect]
     Indication: ACCIDENTAL EXPOSURE
     Dosage: 1/2 OF A 250 ML BOTTLE ONCE, ORAL
     Route: 048
     Dates: start: 20050908, end: 20050908
  2. DRUG, UNSPECIFIED (DRUG, UNSPECIFIED) [Concomitant]

REACTIONS (2)
  - ABDOMINAL PAIN UPPER [None]
  - ACCIDENTAL EXPOSURE [None]
